FAERS Safety Report 5973170-1 (Version None)
Quarter: 2008Q4

REPORT INFORMATION
  Report Type: 
  Country: None (occurrence: None)
  Receive Date: 20081201
  Receipt Date: 20081125
  Transmission Date: 20090506
  Serious: Yes (Other)
  Sender: FDA-Public Use
  Company Number: PHEH2008US10628

PATIENT
  Sex: Female

DRUGS (2)
  1. FOCALIN [Suspect]
     Indication: ATTENTION DEFICIT/HYPERACTIVITY DISORDER
     Dosage: 10 MG, TID
  2. CONCERTA [Suspect]
     Indication: ATTENTION DEFICIT/HYPERACTIVITY DISORDER
     Dosage: 54 MG, BID

REACTIONS (9)
  - CERVICAL VERTEBRAL FRACTURE [None]
  - CONCUSSION [None]
  - IMPAIRED HEALING [None]
  - LACERATION [None]
  - NEURALGIA [None]
  - PAIN [None]
  - ROAD TRAFFIC ACCIDENT [None]
  - SCAR [None]
  - TOOTH FRACTURE [None]
